FAERS Safety Report 14832041 (Version 1)
Quarter: 2018Q2

REPORT INFORMATION
  Report Type: Report from Study
  Country: AU (occurrence: AU)
  Receive Date: 20180501
  Receipt Date: 20180501
  Transmission Date: 20180711
  Serious: Yes (Hospitalization)
  Sender: FDA-Public Use
  Company Number: AU-CLOVIS ONCOLOGY-CLO-2018-000408

PATIENT

DRUGS (5)
  1. METOPROLOL. [Concomitant]
     Active Substance: METOPROLOL
     Indication: PRODUCT USED FOR UNKNOWN INDICATION
  2. RUCAPARIB [Suspect]
     Active Substance: RUCAPARIB
     Dosage: 480 MG, BID
     Route: 048
     Dates: start: 20150819
  3. ESOMEPRAZOLE [Concomitant]
     Active Substance: ESOMEPRAZOLE
     Indication: PRODUCT USED FOR UNKNOWN INDICATION
  4. RUCAPARIB [Suspect]
     Active Substance: RUCAPARIB
     Indication: OVARIAN CANCER
     Dosage: 240 MG, BID
     Route: 048
     Dates: end: 20180219
  5. MIRTAZAPINE. [Concomitant]
     Active Substance: MIRTAZAPINE
     Indication: PRODUCT USED FOR UNKNOWN INDICATION

REACTIONS (1)
  - Acute leukaemia [Not Recovered/Not Resolved]

NARRATIVE: CASE EVENT DATE: 20180424
